FAERS Safety Report 21315716 (Version 2)
Quarter: 2022Q4

REPORT INFORMATION
  Report Type: Spontaneous
  Country: US (occurrence: US)
  Receive Date: 20220909
  Receipt Date: 20221221
  Transmission Date: 20230112
  Serious: No
  Sender: FDA-Public Use
  Company Number: US-ASCENDIS PHARMA-2022US000625

PATIENT

DRUGS (1)
  1. SKYTROFA [Suspect]
     Active Substance: LONAPEGSOMATROPIN-TCGD
     Indication: Growth hormone deficiency
     Dosage: 4.3 MG, ONCE A WEEK
     Route: 058
     Dates: start: 2022

REACTIONS (5)
  - Device malfunction [Unknown]
  - Incorrect dose administered by device [Unknown]
  - Device breakage [Unknown]
  - Product dispensing error [Unknown]
  - Product dose omission issue [Recovered/Resolved]

NARRATIVE: CASE EVENT DATE: 20220710
